FAERS Safety Report 6073845-2 (Version None)
Quarter: 2009Q1

REPORT INFORMATION
  Report Type: 
  Country: None (occurrence: None)
  Receive Date: 20090209
  Receipt Date: 20090209
  Transmission Date: 20090719
  Serious: Yes (Hospitalization)
  Sender: FDA-Public Use
  Company Number: None

PATIENT
  Age: 41 Year
  Sex: Male
  Weight: 68.0396 kg

DRUGS (1)
  1. MEFLOQUINE HCL [Suspect]
     Indication: MALARIA PROPHYLAXIS
     Dosage: 1 TABLET PER WEEK PO
     Route: 048
     Dates: start: 20080210, end: 20080302

REACTIONS (11)
  - AMNESIA [None]
  - ANXIETY [None]
  - DEPRESSED LEVEL OF CONSCIOUSNESS [None]
  - DISTURBANCE IN ATTENTION [None]
  - DRUG INEFFECTIVE [None]
  - HYPOMANIA [None]
  - IMPAIRED WORK ABILITY [None]
  - INSOMNIA [None]
  - PANIC ATTACK [None]
  - SUICIDAL IDEATION [None]
  - THINKING ABNORMAL [None]
